FAERS Safety Report 15221055 (Version 7)
Quarter: 2020Q3

REPORT INFORMATION
  Report Type: Spontaneous
  Country: US (occurrence: US)
  Receive Date: 20180731
  Receipt Date: 20200831
  Transmission Date: 20201102
  Serious: No
  Sender: FDA-Public Use
  Company Number: US-PFIZER INC-2018305639

PATIENT
  Age: 53 Year
  Sex: Male

DRUGS (46)
  1. SOMAVERT [Suspect]
     Active Substance: PEGVISOMANT
     Indication: ACROMEGALY
     Dosage: 20 MG, 1X/DAY
     Route: 058
     Dates: start: 201806
  2. SOMAVERT [Suspect]
     Active Substance: PEGVISOMANT
     Dosage: 30 MG, ALTERNATE DAY (30MG SQ QOD)
     Route: 058
     Dates: start: 20181010
  3. EPLERENONE. [Concomitant]
     Active Substance: EPLERENONE
     Dosage: UNK
  4. ATORVASTATIN CALCIUM. [Concomitant]
     Active Substance: ATORVASTATIN CALCIUM
     Dosage: UNK
  5. METAMUCIL [Concomitant]
     Active Substance: PLANTAGO SEED
     Dosage: UNK
  6. CORTEF [Concomitant]
     Active Substance: HYDROCORTISONE
     Dosage: UNK
  7. ZOFRAN [Concomitant]
     Active Substance: ONDANSETRON HYDROCHLORIDE
     Dosage: UNK
  8. TESTOSTERONE CYPIONATE. [Concomitant]
     Active Substance: TESTOSTERONE CYPIONATE
     Dosage: UNK
  9. LIOTHYRONINE [Concomitant]
     Active Substance: LIOTHYRONINE
     Dosage: UNK
  10. DEXAMETHAZONE [Concomitant]
     Active Substance: DEXAMETHASONE
     Dosage: UNK
  11. MIRALAX [Concomitant]
     Active Substance: POLYETHYLENE GLYCOL 3350
     Dosage: UNK
  12. ENBREL [Concomitant]
     Active Substance: ETANERCEPT
     Dosage: UNK
  13. ARMODAFINIL. [Concomitant]
     Active Substance: ARMODAFINIL
     Dosage: UNK
  14. FLOVENT [Concomitant]
     Active Substance: FLUTICASONE PROPIONATE
     Dosage: UNK
  15. ASPIRIN. [Concomitant]
     Active Substance: ASPIRIN
     Dosage: UNK
  16. BACLOFEN. [Concomitant]
     Active Substance: BACLOFEN
     Dosage: UNK
  17. FLUTICASONE. [Concomitant]
     Active Substance: FLUTICASONE
     Dosage: UNK
  18. PROMETHAZINE [Concomitant]
     Active Substance: PROMETHAZINE HYDROCHLORIDE
     Dosage: UNK
  19. PANTOPRAZOLE [Concomitant]
     Active Substance: PANTOPRAZOLE
     Dosage: UNK
  20. DHEA [Concomitant]
     Active Substance: PRASTERONE
     Dosage: UNK
  21. SUMATRIPTAN SUCCINATE. [Concomitant]
     Active Substance: SUMATRIPTAN SUCCINATE
     Dosage: UNK
  22. DILTIAZEM. [Concomitant]
     Active Substance: DILTIAZEM
     Dosage: UNK
  23. ALPRAZOLAM. [Concomitant]
     Active Substance: ALPRAZOLAM
     Dosage: UNK
  24. CLONAZEPAM. [Concomitant]
     Active Substance: CLONAZEPAM
     Dosage: UNK
  25. LEVOTHYROXINE. [Concomitant]
     Active Substance: LEVOTHYROXINE
     Dosage: UNK
  26. ALPHA LIPOIC ACID [Concomitant]
     Active Substance: .ALPHA.-LIPOIC ACID
     Dosage: UNK
  27. CALCIUM CITRATE [Concomitant]
     Active Substance: CALCIUM CITRATE
     Dosage: UNK
  28. SOMAVERT [Suspect]
     Active Substance: PEGVISOMANT
     Indication: ADRENAL INSUFFICIENCY
     Dosage: 30 MG, ALTERNATE DAY (EVERY OTHER DAY)
     Route: 058
     Dates: start: 20181009
  29. BOTOX [Concomitant]
     Active Substance: ONABOTULINUMTOXINA
     Dosage: UNK
  30. VIAGRA [Concomitant]
     Active Substance: SILDENAFIL CITRATE
     Dosage: UNK
  31. DOXAZOSIN MESYLATE. [Concomitant]
     Active Substance: DOXAZOSIN MESYLATE
     Dosage: UNK
  32. PHYTO STROL [Concomitant]
     Dosage: UNK
  33. NICOTINIC ACID [Concomitant]
     Active Substance: NIACIN
     Dosage: UNK
  34. FUROSEMIDE. [Concomitant]
     Active Substance: FUROSEMIDE
     Dosage: UNK
  35. CLONIDINE. [Concomitant]
     Active Substance: CLONIDINE
     Dosage: UNK
  36. CICLOPIROX. [Concomitant]
     Active Substance: CICLOPIROX
     Dosage: UNK
  37. COENZYME Q10 [Concomitant]
     Active Substance: DIETARY SUPPLEMENT\UBIDECARENONE
     Dosage: UNK
  38. LIDOPRIL [Concomitant]
     Active Substance: LIDOCAINE\PRILOCAINE
     Dosage: UNK
  39. FEXOFENADINE [Concomitant]
     Active Substance: FEXOFENADINE HYDROCHLORIDE
     Dosage: UNK
  40. RANITIDINE. [Concomitant]
     Active Substance: RANITIDINE
     Dosage: UNK
  41. VITAMIN D3 [Concomitant]
     Active Substance: CHOLECALCIFEROL
     Dosage: UNK
  42. OLOPATADINE. [Concomitant]
     Active Substance: OLOPATADINE
     Dosage: UNK
  43. MELATONIN [Concomitant]
     Active Substance: MELATONIN
     Dosage: UNK
  44. POTASSIUM CHLORIDE. [Concomitant]
     Active Substance: POTASSIUM CHLORIDE
     Dosage: UNK
  45. HYDROMORPHONE [Concomitant]
     Active Substance: HYDROMORPHONE
     Dosage: UNK
  46. PROAIR HFA [Concomitant]
     Active Substance: ALBUTEROL SULFATE
     Dosage: UNK

REACTIONS (12)
  - Off label use [Unknown]
  - Peripheral swelling [Unknown]
  - Abdominal pain upper [Unknown]
  - Arthralgia [Unknown]
  - Product dose omission issue [Unknown]
  - Fatigue [Unknown]
  - Muscle spasms [Unknown]
  - Somnolence [Unknown]
  - Abdominal discomfort [Unknown]
  - Gastrointestinal disorder [Unknown]
  - Pain in extremity [Unknown]
  - Diarrhoea [Unknown]

NARRATIVE: CASE EVENT DATE: 2018
